FAERS Safety Report 4882775-0 (Version None)
Quarter: 2005Q4

REPORT INFORMATION
  Report Type: 
  Country: None (occurrence: None)
  Receive Date: 20051201
  Receipt Date: 20050917
  Transmission Date: 20060501
  Serious: No
  Sender: FDA-Public Use
  Company Number: 2005PV002200

PATIENT
  Age: 46 Year
  Sex: Male
  Weight: 98.8842 kg

DRUGS (4)
  1. BYETTA [Suspect]
     Indication: DIABETES MELLITUS NON-INSULIN-DEPENDENT
     Dosage: 5 MCG; BID; SC
     Route: 058
     Dates: start: 20050915
  2. GLUCOVANCE [Concomitant]
  3. LIPITOR [Concomitant]
  4. ENBREL [Concomitant]

REACTIONS (1)
  - BLOOD GLUCOSE INCREASED [None]
